FAERS Safety Report 7275250-X (Version None)
Quarter: 2011Q1

REPORT INFORMATION
  Report Type: 
  Country: None (occurrence: None)
  Receive Date: 20110204
  Receipt Date: 20110125
  Transmission Date: 20110831
  Serious: Yes (Death, Hospitalization)
  Sender: FDA-Public Use
  Company Number: CH-PFIZER INC-2010177130

PATIENT
  Age: 66 Year
  Sex: Male

DRUGS (4)
  1. EFFEXOR XR [Suspect]
     Dosage: 75 MG, 1X/DAY
     Route: 048
     Dates: end: 20100929
  2. OXYCONTIN [Suspect]
     Dosage: 10 MG, 2X/DAY
     Route: 048
     Dates: end: 20100929
  3. SAROTEN [Suspect]
     Dosage: 25 MG, 1X/DAY
     Route: 048
     Dates: end: 20100929
  4. LYRICA [Suspect]
     Dosage: 150 MG, 1X/DAY
     Route: 048
     Dates: end: 20100929

REACTIONS (10)
  - DIARRHOEA [None]
  - CONFUSIONAL STATE [None]
  - SOMNOLENCE [None]
  - ILEUS [None]
  - RENAL FAILURE ACUTE [None]
  - HALLUCINATION [None]
  - MULTI-ORGAN FAILURE [None]
  - CONSTIPATION [None]
  - OVERDOSE [None]
  - MYOCLONUS [None]
